FAERS Safety Report 9050710 (Version 2)
Quarter: 2013Q2

REPORT INFORMATION
  Report Type: Spontaneous
  Country: US (occurrence: US)
  Receive Date: 20130205
  Receipt Date: 20130506
  Transmission Date: 20140414
  Serious: No
  Sender: FDA-Public Use
  Company Number: US-009507513-1301USA013521

PATIENT
  Age: 52 Year
  Sex: Female

DRUGS (2)
  1. AZASITE [Suspect]
     Indication: LACRIMATION INCREASED
     Dosage: 1% / ONE DROP IN EACH EYE ONCE A DAY
     Route: 047
     Dates: start: 20130110
  2. SIMVASTATIN TABLETS, USP [Concomitant]

REACTIONS (3)
  - Drug dose omission [Unknown]
  - Off label use [Unknown]
  - Product quality issue [Unknown]
